FAERS Safety Report 7307359-6 (Version None)
Quarter: 2011Q1

REPORT INFORMATION
  Report Type: 
  Country: None (occurrence: None)
  Receive Date: 20110223
  Receipt Date: 20110221
  Transmission Date: 20110831
  Serious: Yes (Hospitalization)
  Sender: FDA-Public Use
  Company Number: VE-PFIZER INC-2011037606

PATIENT
  Age: 26 Year
  Sex: Female

DRUGS (2)
  1. LOVELLE [Concomitant]
     Indication: CONTRACEPTION
     Dosage: UNK
     Route: 048
  2. CHAMPIX [Suspect]
     Indication: SMOKING CESSATION THERAPY
     Dosage: 1 MG, 2X/DAY
     Route: 048
     Dates: start: 20110207

REACTIONS (1)
  - BRONCHITIS VIRAL [None]
